FAERS Safety Report 24691530 (Version 1)
Quarter: 2024Q4

REPORT INFORMATION
  Report Type: Spontaneous
  Country: CN (occurrence: CN)
  Receive Date: 20241203
  Receipt Date: 20241203
  Transmission Date: 20250115
  Serious: Yes (Other)
  Sender: PFIZER
  Company Number: CN-PFIZER INC-PV202400155038

PATIENT
  Age: 36 Year
  Sex: Female
  Weight: 59 kg

DRUGS (2)
  1. METHOTREXATE SODIUM [Suspect]
     Active Substance: METHOTREXATE SODIUM
     Indication: Ectopic pregnancy
     Dosage: 80 MG, 1X/DAY
     Route: 030
     Dates: start: 20241111, end: 20241111
  2. MIFEPRISTONE [Concomitant]
     Active Substance: MIFEPRISTONE
     Indication: Ectopic pregnancy
     Dosage: 50 MG, 2X/DAY
     Route: 048
     Dates: start: 20241111, end: 20241112

REACTIONS (5)
  - Nausea [Recovering/Resolving]
  - Vomiting [Recovering/Resolving]
  - Dizziness [Recovering/Resolving]
  - Asthenia [Recovering/Resolving]
  - Off label use [Unknown]

NARRATIVE: CASE EVENT DATE: 20241111
